FAERS Safety Report 5832099-X (Version None)
Quarter: 2008Q3

REPORT INFORMATION
  Report Type: 
  Country: None (occurrence: None)
  Receive Date: 20080731
  Receipt Date: 20080717
  Transmission Date: 20090109
  Serious: Yes (Other)
  Sender: FDA-Public Use
  Company Number: ABKYL-08-0212

PATIENT
  Age: 77 Year
  Sex: Female
  Weight: 55.7924 kg

DRUGS (7)
  1. ABRAXANE [Suspect]
     Indication: BREAST CANCER METASTATIC
     Dosage: ONE DOSE (390 MG) PRIOR TO SAE. (Q 3 WKS),INTRAVENOUS
     Route: 042
     Dates: start: 20080512, end: 20080512
  2. ZIAC [Concomitant]
  3. LEVAQUIN [Concomitant]
  4. PHENERGAN HCL [Concomitant]
  5. ASPIRIN [Concomitant]
  6. ZOMETA [Concomitant]
  7. MULTIVITAMIN [Concomitant]

REACTIONS (7)
  - ASCITES [None]
  - HEART RATE INCREASED [None]
  - HYPOAESTHESIA [None]
  - MUCOSAL INFLAMMATION [None]
  - NAUSEA [None]
  - NEUROPATHY PERIPHERAL [None]
  - VOMITING [None]
